FAERS Safety Report 15799153 (Version 1)
Quarter: 2019Q1

REPORT INFORMATION
  Report Type: Report from Study
  Country: US (occurrence: US)
  Receive Date: 20190108
  Receipt Date: 20190108
  Transmission Date: 20190417
  Serious: Yes (Other)
  Sender: FDA-Public Use
  Company Number: US-JAZZ-2018-US-017767

PATIENT
  Sex: Female

DRUGS (15)
  1. AMBIEN [Concomitant]
     Active Substance: ZOLPIDEM TARTRATE
  2. EFFEXOR [Concomitant]
     Active Substance: VENLAFAXINE HYDROCHLORIDE
  3. VITAMIN D3 [Concomitant]
     Active Substance: CHOLECALCIFEROL
  4. GABAPENTIN. [Concomitant]
     Active Substance: GABAPENTIN
  5. MOMETASONE FUROATE. [Concomitant]
     Active Substance: MOMETASONE FUROATE
  6. NAPROXEN. [Concomitant]
     Active Substance: NAPROXEN
  7. PERCOCET [Suspect]
     Active Substance: ACETAMINOPHEN\OXYCODONE HYDROCHLORIDE
     Indication: PRODUCT USED FOR UNKNOWN INDICATION
  8. NORCO [Concomitant]
     Active Substance: ACETAMINOPHEN\HYDROCODONE BITARTRATE
  9. XYREM [Suspect]
     Active Substance: SODIUM OXYBATE
     Indication: NARCOLEPSY
     Dosage: 2.25 G, BID
     Route: 048
     Dates: start: 201811
  10. LINZESS [Concomitant]
     Active Substance: LINACLOTIDE
  11. COLACE [Concomitant]
     Active Substance: DOCUSATE SODIUM
  12. CYCLOBENZAPRINE. [Concomitant]
     Active Substance: CYCLOBENZAPRINE
  13. IBUPROFEN. [Concomitant]
     Active Substance: IBUPROFEN
  14. TYLENOL WITH CODEINE [Concomitant]
     Active Substance: ACETAMINOPHEN\CODEINE PHOSPHATE
  15. ARMODAFINIL. [Concomitant]
     Active Substance: ARMODAFINIL

REACTIONS (2)
  - Personality change [Unknown]
  - Depression [Unknown]

NARRATIVE: CASE EVENT DATE: 2018
